FAERS Safety Report 9684517 (Version 1)
Quarter: 2013Q4

REPORT INFORMATION
  Report Type: Spontaneous
  Country: DE (occurrence: DE)
  Receive Date: 20131112
  Receipt Date: 20131112
  Transmission Date: 20140711
  Serious: Yes (Other)
  Sender: FDA-Public Use
  Company Number: DE-ASTRAZENECA-2013SE81834

PATIENT
  Age: 57 Year
  Sex: Female
  Weight: 107.4 kg

DRUGS (6)
  1. SEROQUEL PROLONG [Suspect]
     Route: 048
     Dates: start: 201212, end: 20130304
  2. SEROQUEL PROLONG [Interacting]
     Route: 048
     Dates: start: 20130305
  3. ERGENYL [Interacting]
     Route: 048
     Dates: start: 201302, end: 20130214
  4. ERGENYL [Interacting]
     Route: 048
     Dates: start: 20130418
  5. OXAZEPAM [Concomitant]
  6. ROHYPNOL [Concomitant]

REACTIONS (4)
  - Drug interaction [Unknown]
  - Generalised oedema [Recovering/Resolving]
  - Stasis dermatitis [Recovered/Resolved]
  - Hyponatraemia [Unknown]
